FAERS Safety Report 8774248 (Version 3)
Quarter: 2012Q4

REPORT INFORMATION
  Report Type: 
  Country: FR (occurrence: FR)
  Receive Date: 20120907
  Receipt Date: 20121101
  Transmission Date: 20130627
  Serious: Yes (Life-Threatening, Hospitalization, Disabling)
  Sender: FDA-Public Use
  Company Number: FR-US-EMD SERONO, INC.-7159136

PATIENT
  Age: 48 Year
  Sex: Female
  Weight: 60 kg

DRUGS (2)
  1. REBIF [Suspect]
     Indication: MULTIPLE SCLEROSIS
     Route: 058
     Dates: start: 201012, end: 20120822
  2. PARACETAMOL [Concomitant]
     Indication: INFLUENZA LIKE ILLNESS
     Route: 048

REACTIONS (3)
  - Posterior reversible encephalopathy syndrome [Recovering/Resolving]
  - Thrombotic microangiopathy [Not Recovered/Not Resolved]
  - Anaemia [Unknown]
